FAERS Safety Report 14668756 (Version 4)
Quarter: 2018Q2

REPORT INFORMATION
  Report Type: Spontaneous
  Country: US (occurrence: US)
  Receive Date: 20180322
  Receipt Date: 20180515
  Transmission Date: 20180711
  Serious: No
  Sender: FDA-Public Use
  Company Number: US-ALKERMES INC.-ALK-2018-001443

PATIENT
  Age: 22 Year
  Sex: Male

DRUGS (2)
  1. ARISTADA [Suspect]
     Active Substance: ARIPIPRAZOLE LAUROXIL
     Indication: SCHIZOPHRENIA
     Dosage: 1064 MG, Q8WK
     Route: 030
     Dates: start: 201712
  2. LITHIUM. [Suspect]
     Active Substance: LITHIUM
     Indication: PRODUCT USED FOR UNKNOWN INDICATION
     Dosage: UNK

REACTIONS (14)
  - Muscle disorder [Not Recovered/Not Resolved]
  - Glassy eyes [Recovered/Resolved]
  - Mania [Unknown]
  - Depression [Not Recovered/Not Resolved]
  - Obsessive thoughts [Not Recovered/Not Resolved]
  - Disturbance in social behaviour [Not Recovered/Not Resolved]
  - Treatment noncompliance [Not Recovered/Not Resolved]
  - Weight increased [Not Recovered/Not Resolved]
  - Anger [Not Recovered/Not Resolved]
  - Anhedonia [Not Recovered/Not Resolved]
  - Drug dose omission [Not Recovered/Not Resolved]
  - Poor personal hygiene [Not Recovered/Not Resolved]
  - Anxiety [Not Recovered/Not Resolved]
  - Judgement impaired [Not Recovered/Not Resolved]

NARRATIVE: CASE EVENT DATE: 201712
